FAERS Safety Report 14708705 (Version 9)
Quarter: 2018Q3

REPORT INFORMATION
  Report Type: Report from Study
  Country: US (occurrence: US)
  Receive Date: 20180403
  Receipt Date: 20180801
  Transmission Date: 20181010
  Serious: Yes (Hospitalization, Other)
  Sender: FDA-Public Use
  Company Number: US-GILEAD-2018-0329907

PATIENT
  Age: 72 Year
  Sex: Female

DRUGS (3)
  1. VELETRI [Concomitant]
     Active Substance: EPOPROSTENOL
     Dosage: 14 UG/KG/MIN, UNK
  2. ELIQUIS [Concomitant]
     Active Substance: APIXABAN
  3. AMBRISENTAN [Suspect]
     Active Substance: AMBRISENTAN
     Indication: PRODUCT USED FOR UNKNOWN INDICATION
     Dosage: 10 MG, QD
     Route: 065
     Dates: start: 20161230

REACTIONS (8)
  - Skin lesion [Recovering/Resolving]
  - Nausea [Recovering/Resolving]
  - Pulmonary arterial hypertension [Unknown]
  - Flatulence [Recovered/Resolved]
  - Abdominal pain upper [Recovered/Resolved]
  - Vomiting [Not Recovered/Not Resolved]
  - Infusion site pain [Not Recovered/Not Resolved]
  - Vomiting [Unknown]

NARRATIVE: CASE EVENT DATE: 20180701
